FAERS Safety Report 25155860 (Version 2)
Quarter: 2025Q2

REPORT INFORMATION
  Report Type: Spontaneous
  Country: US (occurrence: US)
  Receive Date: 20250403
  Receipt Date: 20250414
  Transmission Date: 20250717
  Serious: Yes (Life-Threatening, Hospitalization, Other)
  Sender: PFIZER
  Company Number: US-PFIZER INC-PV202500038740

PATIENT
  Age: 39 Year
  Sex: Male

DRUGS (1)
  1. METOPROLOL TARTRATE [Suspect]
     Active Substance: METOPROLOL TARTRATE

REACTIONS (3)
  - Arrhythmia [Recovering/Resolving]
  - Bradycardia [Recovering/Resolving]
  - Condition aggravated [Recovering/Resolving]
